FAERS Safety Report 14352410 (Version 11)
Quarter: 2020Q1

REPORT INFORMATION
  Report Type: Spontaneous
  Country: CA (occurrence: CA)
  Receive Date: 20180104
  Receipt Date: 20200114
  Transmission Date: 20200409
  Serious: Yes (Hospitalization, Disabling, Other)
  Sender: FDA-Public Use
  Company Number: CA-CELLTRION INC.-2017CA003549

PATIENT

DRUGS (5)
  1. INFLECTRA [Suspect]
     Active Substance: INFLIXIMAB-DYYB
     Dosage: 6.5 MG/KG, EVERY 8 WEEKS
     Route: 042
     Dates: end: 20180201
  2. INFLECTRA [Suspect]
     Active Substance: INFLIXIMAB-DYYB
     Dosage: 500 MG, (EVERY 2, 6 WEEKS, THEN EVERY 8 WEEKS FOR 12 MONTHS)
     Route: 042
     Dates: start: 20171107, end: 20171107
  3. TRIAMCINOLONE [Suspect]
     Active Substance: TRIAMCINOLONE
     Indication: SYNOVITIS
     Dosage: 40 MG, SINGLE
     Route: 014
     Dates: start: 20170921, end: 20170921
  4. INFLECTRA [Suspect]
     Active Substance: INFLIXIMAB-DYYB
     Indication: RHEUMATOID ARTHRITIS
     Dosage: 500 MG, (EVERY 2, 6 WEEKS, THEN EVERY 8 WEEKS FOR 12 MONTHS)
     Route: 042
     Dates: start: 20170215, end: 2017
  5. METHOTREXATE. [Concomitant]
     Active Substance: METHOTREXATE
     Indication: SPONDYLITIS
     Dosage: 10 MG, WEEKLY
     Route: 048
     Dates: start: 20150707, end: 20180801

REACTIONS (16)
  - Osteomyelitis [Recovered/Resolved with Sequelae]
  - Osteitis [Unknown]
  - Dyspepsia [Not Recovered/Not Resolved]
  - Vein rupture [Unknown]
  - Catheter site oedema [Unknown]
  - Arthralgia [Not Recovered/Not Resolved]
  - Erythema [Not Recovered/Not Resolved]
  - Gout [Not Recovered/Not Resolved]
  - Subcutaneous abscess [Unknown]
  - Joint abscess [Not Recovered/Not Resolved]
  - Catheter site pain [Unknown]
  - Oedema peripheral [Not Recovered/Not Resolved]
  - Joint warmth [Not Recovered/Not Resolved]
  - Poor venous access [Recovered/Resolved]
  - Contusion [Not Recovered/Not Resolved]
  - Peripheral swelling [Not Recovered/Not Resolved]

NARRATIVE: CASE EVENT DATE: 20170217
